FAERS Safety Report 7445659-X (Version None)
Quarter: 2011Q2

REPORT INFORMATION
  Report Type: 
  Country: None (occurrence: None)
  Receive Date: 20110429
  Receipt Date: 20110422
  Transmission Date: 20111010
  Serious: Yes (Hospitalization)
  Sender: FDA-Public Use
  Company Number: FR-ROCHE-772946

PATIENT
  Age: 75 Year
  Sex: Male

DRUGS (12)
  1. COSOPT [Concomitant]
     Route: 048
     Dates: start: 20100101
  2. KARDEGIC [Concomitant]
     Route: 048
  3. SOTALOL HCL [Concomitant]
  4. INSULIN [Concomitant]
  5. TRAVATAN [Concomitant]
  6. SEROPLEX [Concomitant]
  7. NEXIUM [Concomitant]
  8. NEURONTIN [Concomitant]
  9. PROTELOS [Concomitant]
     Route: 048
  10. ROACTEMRA [Suspect]
     Route: 042
     Dates: start: 20100222
  11. PREDNISONE [Suspect]
     Dosage: DRUG NAME: PREDNISONE ARROW
     Route: 048
  12. CORTANCYL [Concomitant]

REACTIONS (3)
  - STAPHYLOCOCCUS TEST POSITIVE [None]
  - LUNG DISORDER [None]
  - LYMPHOPENIA [None]
